FAERS Safety Report 6325951-2 (Version None)
Quarter: 2009Q3

REPORT INFORMATION
  Report Type: 
  Country: None (occurrence: None)
  Receive Date: 20090820
  Receipt Date: 20090811
  Transmission Date: 20100115
  Serious: Yes (Hospitalization)
  Sender: FDA-Public Use
  Company Number: GXKR2009FR08707

PATIENT
  Age: 69 Year
  Sex: Male

DRUGS (13)
  1. HALOPERIDOL [Suspect]
     Indication: SCHIZOPHRENIA
  2. LEVOMEPROMAZINE (NGX) (LEVOMEPROMAZINE) UNKNOWN [Suspect]
     Indication: SCHIZOPHRENIA
  3. MEPROBAMATE (NGX) (MEPROBAMATE) [Suspect]
     Indication: SCHIZOPHRENIA
  4. RISPERIDONE [Suspect]
     Indication: SCHIZOPHRENIA
  5. PIPAMPERONE (NGX) (PIPAMPERONE) [Suspect]
     Indication: SCHIZOPHRENIA
  6. OLANZAPINE [Suspect]
     Indication: SCHIZOPHRENIA
     Dosage: 5 MG
  7. OXAZEPAM [Concomitant]
  8. MIRTAZAPINE [Concomitant]
  9. VALPROMIDE (VALPROMIDE) [Concomitant]
  10. CLONAZEPAM [Concomitant]
  11. TRIHEXYPHENIDYL HCL [Concomitant]
  12. ANXIOLYTICS (NO INGREDIENTS/SUBSTANCES) [Concomitant]
  13. ACEPROMETAZINE (ACEPROMETAZINE) [Concomitant]

REACTIONS (4)
  - APATHY [None]
  - CELL DEATH [None]
  - HYPOTHERMIA [None]
  - INFLAMMATION [None]
